FAERS Safety Report 10143560 (Version 2)
Quarter: 2014Q2

REPORT INFORMATION
  Report Type: Spontaneous
  Country: US (occurrence: US)
  Receive Date: 20140430
  Receipt Date: 20140520
  Transmission Date: 20141212
  Serious: No
  Sender: FDA-Public Use
  Company Number: US-GILEAD-2014-0100534

PATIENT
  Sex: Male

DRUGS (2)
  1. SOVALDI [Suspect]
     Indication: HEPATITIS C
     Dosage: UNK
     Route: 065
     Dates: end: 201404
  2. RIBAVIRIN [Concomitant]

REACTIONS (11)
  - Musculoskeletal discomfort [Unknown]
  - Incision site pain [Not Recovered/Not Resolved]
  - Headache [Unknown]
  - Malaise [Unknown]
  - Disorientation [Unknown]
  - Dizziness [Not Recovered/Not Resolved]
  - Depression [Unknown]
  - Dyspnoea [Not Recovered/Not Resolved]
  - Irritability [Unknown]
  - Back pain [Unknown]
  - Back pain [Unknown]
